FAERS Safety Report 20946584 (Version 1)
Quarter: 2022Q2

REPORT INFORMATION
  Report Type: Spontaneous
  Country: AR (occurrence: AR)
  Receive Date: 20220610
  Receipt Date: 20220610
  Transmission Date: 20220721
  Serious: Yes (Other)
  Sender: FDA-Public Use
  Company Number: AR-PFIZER INC-202200776967

PATIENT
  Age: 21 Year
  Sex: Female

DRUGS (2)
  1. XELJANZ [Suspect]
     Active Substance: TOFACITINIB CITRATE
     Indication: Rheumatoid arthritis
     Dosage: 10 MG, 1X/DAY
     Route: 048
     Dates: start: 20210414
  2. USTEKINUMAB [Suspect]
     Active Substance: USTEKINUMAB
     Indication: Crohn^s disease
     Dosage: 90 MG, EVERY 8 WEEKS
     Route: 058
     Dates: start: 202111

REACTIONS (9)
  - Pyoderma gangrenosum [Unknown]
  - Osteonecrosis [Unknown]
  - Surgery [Unknown]
  - Off label use [Unknown]
  - Product use issue [Unknown]
  - Intestinal anastomosis [Unknown]
  - Female genital tract fistula [Unknown]
  - Enteral nutrition [Unknown]
  - Ileostomy [Unknown]
